FAERS Safety Report 24818681 (Version 1)
Quarter: 2025Q1

REPORT INFORMATION
  Report Type: Spontaneous
  Country: US (occurrence: US)
  Receive Date: 20250108
  Receipt Date: 20250108
  Transmission Date: 20250409
  Serious: No
  Sender: SMARTPRACTICE DENMARK
  Company Number: US-SmartPractice Denmark ApS-2168607

PATIENT
  Age: 70 Year
  Sex: Female

DRUGS (1)
  1. T.R.U.E. TEST (THIN-LAYER RAPID USE EPICUTANEOUS PATCH TEST) [Suspect]
     Active Substance: ALLERGEN PATCH TEST
     Indication: Allergy to metals
     Dates: start: 20240820, end: 20240822

REACTIONS (2)
  - Administration site reaction [Recovered/Resolved]
  - Skin irritation [Recovered/Resolved]

NARRATIVE: CASE EVENT DATE: 20240822
